FAERS Safety Report 24381946 (Version 1)
Quarter: 2024Q4

REPORT INFORMATION
  Report Type: Spontaneous
  Country: CA (occurrence: CA)
  Receive Date: 20241001
  Receipt Date: 20241001
  Transmission Date: 20250114
  Serious: Yes (Other)
  Sender: INTERCEPT PHARMACEUTICALS
  Company Number: CA-ADVANZ PHARMA-202409007773

PATIENT
  Age: 51 Year
  Sex: Female

DRUGS (2)
  1. OCALIVA [Suspect]
     Active Substance: OBETICHOLIC ACID
     Indication: Primary biliary cholangitis
     Dosage: 10 MG, QD (OCALIVA)
     Route: 048
     Dates: start: 20211211
  2. URSODIOL [Concomitant]
     Active Substance: URSODIOL
     Dosage: 750 MG, TID
     Dates: start: 2018

REACTIONS (2)
  - Pulmonary oedema [Recovering/Resolving]
  - Sinusitis [Recovering/Resolving]

NARRATIVE: CASE EVENT DATE: 20240801
